FAERS Safety Report 8325395-8 (Version None)
Quarter: 2012Q2

REPORT INFORMATION
  Report Type: 
  Country: None (occurrence: None)
  Receive Date: 20120501
  Receipt Date: 20120420
  Transmission Date: 20120825
  Serious: Yes (Other)
  Sender: FDA-Public Use
  Company Number: US-JNJFOC-20120411271

PATIENT
  Sex: Male

DRUGS (1)
  1. ROLAIDS [Suspect]
     Indication: PRODUCT USED FOR UNKNOWN INDICATION
     Route: 065

REACTIONS (3)
  - MALAISE [None]
  - SKIN ULCER [None]
  - PRODUCT QUALITY ISSUE [None]
